FAERS Safety Report 8530117-1 (Version None)
Quarter: 2012Q3

REPORT INFORMATION
  Report Type: 
  Country: None (occurrence: None)
  Receive Date: 20120723
  Receipt Date: 20120718
  Transmission Date: 20120928
  Serious: Yes (Death)
  Sender: FDA-Public Use
  Company Number: PHHY2012CA059232

PATIENT
  Sex: Female

DRUGS (7)
  1. CLOZARIL [Suspect]
     Indication: SCHIZOAFFECTIVE DISORDER
     Dosage: 150 MG, QHS
     Route: 048
     Dates: start: 20101021
  2. VITAMIN B-12 [Concomitant]
     Dosage: UNK UKN, UNK
  3. SYNTHROID [Concomitant]
     Dosage: 100 UG, QD
  4. ATORVASTATIN [Concomitant]
     Dosage: 10 MG, QHS
  5. ADVAIR DISKUS 100/50 [Concomitant]
     Dosage: UNK UKN, UNK
  6. LITHIUM CARBONATE [Concomitant]
     Dosage: 300MG AM + 150MG HS
  7. METFORMIN HYDROCHLORIDE [Concomitant]
     Dosage: 500 MG, BID

REACTIONS (1)
  - PNEUMONIA ASPIRATION [None]
